FAERS Safety Report 14925624 (Version 1)
Quarter: 2018Q2

REPORT INFORMATION
  Report Type: Report from Study
  Country: BR (occurrence: BR)
  Receive Date: 20180522
  Receipt Date: 20180522
  Transmission Date: 20180711
  Serious: Yes (Other)
  Sender: FDA-Public Use
  Company Number: BR-JNJFOC-20170627234

PATIENT
  Age: 78 Year
  Sex: Male
  Weight: 62 kg

DRUGS (1)
  1. SIMPONI [Suspect]
     Active Substance: GOLIMUMAB
     Indication: RHEUMATOID ARTHRITIS
     Route: 058
     Dates: start: 20160617

REACTIONS (15)
  - Deafness [Unknown]
  - Arthralgia [Recovering/Resolving]
  - Spinal pain [Unknown]
  - Cough [Not Recovered/Not Resolved]
  - Pain in extremity [Unknown]
  - Influenza [Unknown]
  - Peripheral swelling [Recovered/Resolved]
  - Back pain [Unknown]
  - Insomnia [Recovered/Resolved]
  - Hand deformity [Recovered/Resolved]
  - Labyrinthitis [Unknown]
  - Weight decreased [Not Recovered/Not Resolved]
  - Dry skin [Not Recovered/Not Resolved]
  - Mass [Unknown]
  - Agitation [Unknown]

NARRATIVE: CASE EVENT DATE: 201706
